FAERS Safety Report 7289385-9 (Version None)
Quarter: 2011Q1

REPORT INFORMATION
  Report Type: 
  Country: None (occurrence: None)
  Receive Date: 20110211
  Receipt Date: 20110207
  Transmission Date: 20110831
  Serious: Yes (Other)
  Sender: FDA-Public Use
  Company Number: BR-PFIZER INC-2011027623

PATIENT
  Age: 53 Year
  Sex: Female
  Weight: 50 kg

DRUGS (3)
  1. CHAMPIX [Suspect]
     Indication: TOBACCO USER
     Dosage: 0.5 MG, 1X/DAY
     Route: 048
     Dates: start: 20110201, end: 20110208
  2. FORASEQ [Concomitant]
     Indication: TRAUMATIC LUNG INJURY
     Dosage: UNK
  3. FORASEQ [Concomitant]
     Indication: PNEUMONIA

REACTIONS (10)
  - FEELING ABNORMAL [None]
  - HEADACHE [None]
  - STOMATITIS [None]
  - DIARRHOEA [None]
  - TONGUE BLISTERING [None]
  - NAUSEA [None]
  - DIZZINESS [None]
  - PHARYNGITIS [None]
  - ABDOMINAL PAIN [None]
  - NECK PAIN [None]
